FAERS Safety Report 9143534 (Version 2)
Quarter: 2013Q1

REPORT INFORMATION
  Report Type: Spontaneous
  Country: CA (occurrence: CA)
  Receive Date: 20130306
  Receipt Date: 20130329
  Transmission Date: 20140127
  Serious: Yes (Hospitalization)
  Sender: FDA-Public Use
  Company Number: CA-AMGEN-CANSP2013013034

PATIENT
  Age: 65 Year
  Sex: Female

DRUGS (10)
  1. PROLIA [Suspect]
     Indication: OSTEOPOROSIS
     Dosage: 60 MG, UNK
     Route: 058
     Dates: start: 20120824
  2. EURO FOLIC [Concomitant]
     Dosage: 5 MG, QD
     Route: 048
  3. CALCIUM [Concomitant]
     Dosage: 500 MG, BID
  4. PREVACID [Concomitant]
     Dosage: 30 MG, QD
     Route: 048
  5. METHOTREXATE [Concomitant]
  6. PLAQUENIL                          /00072602/ [Concomitant]
     Dosage: 400 MUG, QD
  7. D TABS [Concomitant]
     Dosage: 10000 IU, QWK
     Route: 048
  8. VALTREX [Concomitant]
     Dosage: 1000 MG, BID
     Route: 048
  9. ATIVAN [Concomitant]
     Dosage: 0.5 MG, UNK
     Route: 048
  10. TIAZAC XC [Concomitant]
     Dosage: 240 MG, QD

REACTIONS (3)
  - Herpes simplex meningoencephalitis [Recovered/Resolved]
  - Headache [Unknown]
  - Convulsion [Unknown]
